FAERS Safety Report 21386515 (Version 2)
Quarter: 2022Q4

REPORT INFORMATION
  Report Type: Report from Study
  Country: US (occurrence: US)
  Receive Date: 20220928
  Receipt Date: 20221017
  Transmission Date: 20230113
  Serious: Yes (Hospitalization)
  Sender: FDA-Public Use
  Company Number: US-GSK-US2022125485

PATIENT

DRUGS (3)
  1. INVESTIGATIONAL PRODUCT [Suspect]
     Active Substance: INVESTIGATIONAL PRODUCT
     Indication: Prophylaxis
     Route: 030
     Dates: start: 20220222
  2. INVESTIGATIONAL PRODUCT [Suspect]
     Active Substance: INVESTIGATIONAL PRODUCT
     Indication: Prophylaxis
     Route: 030
     Dates: start: 20211015
  3. BUPROPION [Suspect]
     Active Substance: BUPROPION
     Indication: Depression
     Dosage: 150 MG, 1D
     Route: 048
     Dates: start: 20210525, end: 20220322

REACTIONS (1)
  - Intentional overdose [Recovered/Resolved]

NARRATIVE: CASE EVENT DATE: 20220322
